FAERS Safety Report 16374609 (Version 2)
Quarter: 2019Q2

REPORT INFORMATION
  Report Type: Spontaneous
  Country: IT (occurrence: IT)
  Receive Date: 20190530
  Receipt Date: 20190616
  Transmission Date: 20190711
  Serious: Yes (Hospitalization)
  Sender: FDA-Public Use
  Company Number: PHHY2019IT122702

PATIENT
  Age: 89 Year
  Sex: Female

DRUGS (1)
  1. ALLOPURINOL. [Suspect]
     Active Substance: ALLOPURINOL
     Indication: HYPERURICAEMIA
     Dosage: 1 DF, QD
     Route: 048
     Dates: start: 20190313, end: 20190316

REACTIONS (5)
  - Skin exfoliation [Unknown]
  - Dermatitis exfoliative generalised [Unknown]
  - Inflammation [Unknown]
  - Toxic skin eruption [Unknown]
  - Dermatitis [Unknown]

NARRATIVE: CASE EVENT DATE: 20190316
